FAERS Safety Report 7378119-5 (Version None)
Quarter: 2011Q1

REPORT INFORMATION
  Report Type: 
  Country: None (occurrence: None)
  Receive Date: 20110328
  Receipt Date: 20110324
  Transmission Date: 20110831
  Serious: Yes (Other)
  Sender: FDA-Public Use
  Company Number: A0917923A

PATIENT
  Age: 29 Year
  Sex: Male
  Weight: 106.8 kg

DRUGS (2)
  1. NICODERM CQ [Suspect]
     Indication: SMOKING CESSATION THERAPY
     Dosage: 14MG PER DAY
     Route: 062
     Dates: start: 20110301
  2. CONCERTA [Suspect]
     Dosage: 54MG PER DAY
     Dates: start: 20100228

REACTIONS (6)
  - LACRIMATION INCREASED [None]
  - ANXIETY [None]
  - APHASIA [None]
  - PAIN IN EXTREMITY [None]
  - MYDRIASIS [None]
  - DRUG INTERACTION [None]
